FAERS Safety Report 8599090-4 (Version None)
Quarter: 2012Q3

REPORT INFORMATION
  Report Type: 
  Country: None (occurrence: None)
  Receive Date: 20120816
  Receipt Date: 19940110
  Transmission Date: 20120928
  Serious: Yes (Other)
  Sender: FDA-Public Use
  Company Number: US-ROCHE-1101448

PATIENT
  Age: 51 Year
  Sex: Male

DRUGS (5)
  1. HEPARIN [Concomitant]
  2. NITRO DRIP [Concomitant]
     Route: 042
  3. ACTIVASE [Suspect]
     Indication: ACUTE MYOCARDIAL INFARCTION
  4. DEMEROL [Concomitant]
     Dosage: 25 IV
     Route: 042
  5. PHENERGAN HCL [Concomitant]
     Dosage: 25 IV
     Route: 042

REACTIONS (3)
  - CARDIAC FAILURE CONGESTIVE [None]
  - GALLOP RHYTHM PRESENT [None]
  - CHEST PAIN [None]
